FAERS Safety Report 11072052 (Version 2)
Quarter: 2015Q2

REPORT INFORMATION
  Report Type: Spontaneous
  Country: IT (occurrence: IT)
  Receive Date: 20150428
  Receipt Date: 20150512
  Transmission Date: 20150821
  Serious: Yes (Hospitalization)
  Sender: FDA-Public Use
  Company Number: IT-TEVA-557299ACC

PATIENT
  Age: 9 Year
  Sex: Male

DRUGS (11)
  1. DESAMETHASONE [Interacting]
     Active Substance: DEXAMETHASONE
     Indication: INFLUENZA
  2. PARACETAMOL [Interacting]
     Active Substance: ACETAMINOPHEN
     Indication: BEHAVIOURAL THERAPY
  3. METOCLOPRAMIDE. [Interacting]
     Active Substance: METOCLOPRAMIDE
     Indication: INFLUENZA
  4. PARACETAMOL [Interacting]
     Active Substance: ACETAMINOPHEN
     Indication: TIC
  5. IBUPROFEN. [Suspect]
     Active Substance: IBUPROFEN
     Indication: INFLUENZA
  6. DOMPERIDONE [Interacting]
     Active Substance: DOMPERIDONE
     Indication: INFLUENZA
  7. RISPERDAL - 1 MG/ML GOCCE ORALI, SOLUZIONE - JANSSEN CILAG S.P.A. [Interacting]
     Active Substance: RISPERIDONE
     Indication: MOVEMENT DISORDER
     Dosage: .5 MILLIGRAM DAILY; .5 MG DAILY (0.25 X 2 TIMES), ORAL DROPS, SOLUTION
     Route: 048
     Dates: start: 20140928, end: 20150110
  8. RISPERDAL - 1 MG/ML GOCCE ORALI, SOLUZIONE - JANSSEN CILAG S.P.A. [Interacting]
     Active Substance: RISPERIDONE
     Indication: BEHAVIOURAL THERAPY
  9. BUTAMIRATE CITRATE [Interacting]
     Active Substance: BUTAMIRATE CITRATE
     Indication: INFLUENZA
  10. PARACETAMOL [Interacting]
     Active Substance: ACETAMINOPHEN
     Indication: INFLUENZA
     Route: 065
  11. RISPERDAL - 1 MG/ML GOCCE ORALI, SOLUZIONE - JANSSEN CILAG S.P.A. [Interacting]
     Active Substance: RISPERIDONE
     Indication: TIC

REACTIONS (3)
  - Bradycardia [Recovered/Resolved]
  - Drug interaction [Unknown]
  - Sinus bradycardia [Unknown]

NARRATIVE: CASE EVENT DATE: 20150118
